FAERS Safety Report 5063904-5 (Version None)
Quarter: 2006Q3

REPORT INFORMATION
  Report Type: 
  Country: None (occurrence: None)
  Receive Date: 20060703
  Receipt Date: 20050921
  Transmission Date: 20061208
  Serious: No
  Sender: FDA-Public Use
  Company Number: 2005S1009395

PATIENT
  Age: 56 Year
  Sex: Male
  Weight: 110.6777 kg

DRUGS (9)
  1. CLOZAPINE [Suspect]
     Indication: SCHIZOPHRENIA
     Dosage: 400 MG;QD;PO
     Route: 048
     Dates: start: 20040701
  2. DIAZEPAM [Concomitant]
  3. VALPROATE SODIUM [Concomitant]
  4. ETODOLAC [Concomitant]
  5. GLIBENCLAMIDE [Concomitant]
  6. LISINOPRIL [Concomitant]
  7. METOPROLOL SUCCINATE [Concomitant]
  8. QUETIAPINE FUMARATE [Concomitant]
  9. HYDROXYZINE [Concomitant]

REACTIONS (1)
  - GRANULOCYTOPENIA [None]
